FAERS Safety Report 13420061 (Version 1)
Quarter: 2017Q2

REPORT INFORMATION
  Report Type: Spontaneous
  Country: US (occurrence: US)
  Receive Date: 20170407
  Receipt Date: 20170407
  Transmission Date: 20170830
  Serious: No
  Sender: FDA-Public Use
  Company Number: US-JNJFOC-20170312456

PATIENT
  Sex: Female
  Weight: 47.63 kg

DRUGS (1)
  1. STELARA [Suspect]
     Active Substance: USTEKINUMAB
     Indication: PSORIASIS
     Route: 058
     Dates: end: 201411

REACTIONS (3)
  - Weight increased [Unknown]
  - Exposure during pregnancy [Recovered/Resolved]
  - Psoriasis [Recovered/Resolved]
